FAERS Safety Report 6370476-1 (Version None)
Quarter: 2009Q3

REPORT INFORMATION
  Report Type: 
  Country: None (occurrence: None)
  Receive Date: 20090923
  Receipt Date: 20090911
  Transmission Date: 20100115
  Serious: Yes (Hospitalization, Disabling, Other)
  Sender: FDA-Public Use
  Company Number: BR-PFIZER INC-2009222975

PATIENT
  Age: 71 Year

DRUGS (8)
  1. DETRUSITOL LA [Suspect]
     Indication: NEUROGENIC BLADDER
     Dosage: 4 MG, 1X/DAY
     Route: 048
     Dates: start: 20030101, end: 20090603
  2. DETRUSITOL LA [Suspect]
     Indication: HYPERTONIC BLADDER
  3. VENLAFAXINE [Concomitant]
     Dosage: 75 MG, UNK
  4. ALPRAZOLAM [Concomitant]
     Dosage: UNK
  5. MIRTAZAPINE [Concomitant]
     Dosage: UNK
  6. REMERON [Concomitant]
     Dosage: UNK
  7. AMLODIPINE [Concomitant]
     Indication: HYPERTENSION
     Dosage: UNK
  8. NATRILIX [Concomitant]
     Indication: HYPERTENSION
     Dosage: UNK

REACTIONS (7)
  - BLADDER CATHETERISATION [None]
  - BLADDER SPASM [None]
  - MALAISE [None]
  - PROSTATE INFECTION [None]
  - TRANSURETHRAL PROSTATECTOMY [None]
  - URINARY INCONTINENCE [None]
  - URINARY TRACT INFECTION [None]
